FAERS Safety Report 5928813-5 (Version None)
Quarter: 2008Q4

REPORT INFORMATION
  Report Type: 
  Country: None (occurrence: None)
  Receive Date: 20081020
  Receipt Date: 20081002
  Transmission Date: 20090506
  Serious: Yes (Death, Life-Threatening)
  Sender: FDA-Public Use
  Company Number: 1000001227

PATIENT
  Age: 36 Year
  Sex: Female

DRUGS (1)
  1. DINOPROSTONE (DINOPROSTONE) [Suspect]
     Indication: LABOUR INDUCTION
     Dosage: (10 MG, ONCE), VAGINAL
     Route: 067

REACTIONS (19)
  - BLOOD PRESSURE IMMEASURABLE [None]
  - BLOOD PRESSURE SYSTOLIC DECREASED [None]
  - CARDIAC ARREST [None]
  - CYANOSIS [None]
  - DISSEMINATED INTRAVASCULAR COAGULATION [None]
  - DYSPNOEA [None]
  - HAEMODYNAMIC INSTABILITY [None]
  - HEART RATE INCREASED [None]
  - HYPOCOAGULABLE STATE [None]
  - HYSTERECTOMY [None]
  - LOSS OF CONSCIOUSNESS [None]
  - MULTI-ORGAN DISORDER [None]
  - NO THERAPEUTIC RESPONSE [None]
  - PLATELET COUNT DECREASED [None]
  - POSTPARTUM HAEMORRHAGE [None]
  - RESPIRATORY DISORDER [None]
  - UTERINE ATONY [None]
  - VACUUM EXTRACTOR DELIVERY [None]
  - VENTRICULAR TACHYCARDIA [None]
